FAERS Safety Report 8565047-2 (Version None)
Quarter: 2012Q3

REPORT INFORMATION
  Report Type: 
  Country: None (occurrence: None)
  Receive Date: 20120723
  Receipt Date: 20120717
  Transmission Date: 20120928
  Serious: Yes (Other)
  Sender: FDA-Public Use
  Company Number: DSA_57859_2012

PATIENT
  Sex: Female

DRUGS (1)
  1. XENAZINE [Suspect]
     Indication: HUNTINGTON'S DISEASE
     Dosage: 12.5 MG (25 MG EACH MORNING AND 12.5 MG EACH EVENING) ORAL
     Route: 048
     Dates: start: 20120503, end: 20120701

REACTIONS (3)
  - HUNGER [None]
  - ANXIETY [None]
  - SUICIDAL IDEATION [None]
